FAERS Safety Report 4483857-8 (Version None)
Quarter: 2004Q4

REPORT INFORMATION
  Report Type: 
  Country: None (occurrence: None)
  Receive Date: 20041020
  Receipt Date: 20041005
  Transmission Date: 20050328
  Serious: Yes (Death)
  Sender: FDA-Public Use
  Company Number: K200401522

PATIENT
  Age: 20 Year

DRUGS (3)
  1. TUSSIGON [Suspect]
     Dosage: ORAL
     Route: 048
  2. ALPRAZOLAM [Suspect]
     Dosage: ORAL
     Route: 048
  3. METHADONE HCL [Suspect]
     Dosage: ORAL
     Route: 048

REACTIONS (1)
  - DEATH [None]
